FAERS Safety Report 13795106 (Version 2)
Quarter: 2017Q3

REPORT INFORMATION
  Report Type: Spontaneous
  Country: TR (occurrence: TR)
  Receive Date: 20170726
  Receipt Date: 20170915
  Transmission Date: 20171127
  Serious: Yes (Other)
  Sender: FDA-Public Use
  Company Number: TR-BAYER-2017-136236

PATIENT
  Age: 37 Year
  Sex: Female

DRUGS (2)
  1. EUTHYROX [Concomitant]
     Active Substance: LEVOTHYROXINE SODIUM
     Dosage: 75 MG, UNK
     Dates: start: 2007
  2. CLIMARA [Suspect]
     Active Substance: ESTRADIOL
     Indication: IN VITRO FERTILISATION
     Dosage: UNK
     Route: 062
     Dates: start: 20170715, end: 20170715

REACTIONS (10)
  - Mouth swelling [Recovered/Resolved]
  - Swelling face [Recovered/Resolved]
  - Allergic oedema [Recovered/Resolved]
  - Feeling abnormal [None]
  - Product use in unapproved indication [None]
  - Lip swelling [Recovered/Resolved]
  - Dyspnoea [Recovered/Resolved]
  - Nocturnal dyspnoea [Recovered/Resolved]
  - Epiglottic oedema [Recovered/Resolved]
  - Off label use [None]

NARRATIVE: CASE EVENT DATE: 20170715
